FAERS Safety Report 24292936 (Version 1)
Quarter: 2024Q3

REPORT INFORMATION
  Report Type: Spontaneous
  Country: JP (occurrence: JP)
  Receive Date: 20240906
  Receipt Date: 20240906
  Transmission Date: 20241017
  Serious: Yes (Hospitalization, Other)
  Sender: DAIICHI
  Company Number: JP-DSJP-DSJ-2024-127987

PATIENT
  Age: 84 Year
  Sex: Male

DRUGS (7)
  1. EDOXABAN TOSYLATE [Suspect]
     Active Substance: EDOXABAN TOSYLATE
     Indication: Atrial fibrillation
     Dosage: 30 MG, QD
     Route: 048
     Dates: start: 202404, end: 202405
  2. EDOXABAN TOSYLATE [Suspect]
     Active Substance: EDOXABAN TOSYLATE
     Dosage: 30 MG, BID,ONE TABLET IN THE MORNING AND ONE AT NIGHT
     Route: 048
     Dates: start: 202405
  3. EDOXABAN TOSYLATE [Suspect]
     Active Substance: EDOXABAN TOSYLATE
     Dosage: 60 MG, QD
     Route: 048
  4. EDOXABAN TOSYLATE [Suspect]
     Active Substance: EDOXABAN TOSYLATE
     Dosage: 30MG/ DAY
     Route: 048
  5. CALBLOCK [Suspect]
     Active Substance: AZELNIDIPINE
     Indication: Product used for unknown indication
     Dosage: UNK
     Route: 048
  6. LOXOPROFEN SODIUM [Suspect]
     Active Substance: LOXOPROFEN SODIUM
     Indication: Fall
     Dosage: UNK
     Route: 048
     Dates: start: 202407
  7. SILODOSIN [Suspect]
     Active Substance: SILODOSIN
     Indication: Product used for unknown indication
     Dosage: UNK
     Route: 048

REACTIONS (6)
  - Atrial fibrillation [Recovering/Resolving]
  - Weight decreased [Not Recovered/Not Resolved]
  - Haematuria [Recovering/Resolving]
  - Fall [Unknown]
  - Haematochezia [Unknown]
  - Inappropriate schedule of product administration [Unknown]

NARRATIVE: CASE EVENT DATE: 20240101
